FAERS Safety Report 11535970 (Version 1)
Quarter: 2015Q3

REPORT INFORMATION
  Report Type: Spontaneous
  Country: CA (occurrence: CA)
  Receive Date: 20150922
  Receipt Date: 20150922
  Transmission Date: 20151125
  Serious: Yes (Other)
  Sender: FDA-Public Use
  Company Number: CA-TARO PHARMACEUTICALS USA.,INC-2015SUN01976

PATIENT
  Sex: Male

DRUGS (3)
  1. TARO-PHENYTOIN ORAL SUSPENSION 125 MG/5 ML [Suspect]
     Active Substance: PHENYTOIN
     Dosage: TWICE DAILY
     Route: 050
  2. JEVITY [Concomitant]
     Active Substance: DIETARY SUPPLEMENT
     Dosage: UNK
  3. TARO-PHENYTOIN ORAL SUSPENSION 125 MG/5 ML [Suspect]
     Active Substance: PHENYTOIN
     Indication: PRODUCT USED FOR UNKNOWN INDICATION
     Dosage: ONCE DAILY
     Route: 050

REACTIONS (3)
  - Underdose [Unknown]
  - Seizure [Unknown]
  - Product substitution issue [Unknown]
